FAERS Safety Report 7108564-4 (Version None)
Quarter: 2010Q4

REPORT INFORMATION
  Report Type: 
  Country: None (occurrence: None)
  Receive Date: 20101117
  Receipt Date: 20100920
  Transmission Date: 20110411
  Serious: No
  Sender: FDA-Public Use
  Company Number: A0882086A

PATIENT
  Age: 68 Year
  Sex: Female

DRUGS (4)
  1. VOTRIENT [Suspect]
     Dosage: 200MG FOUR TIMES PER DAY
     Route: 048
     Dates: start: 20100601
  2. HORMONE PILL [Concomitant]
  3. UNSPECIFIED MEDICATION [Concomitant]
     Indication: NAUSEA
  4. UNSPECIFIED MEDICATION [Concomitant]

REACTIONS (9)
  - ALLERGY TO ARTHROPOD BITE [None]
  - ALOPECIA [None]
  - DECREASED APPETITE [None]
  - DIARRHOEA [None]
  - ERYTHEMA [None]
  - HAIR COLOUR CHANGES [None]
  - NAUSEA [None]
  - PRURITUS [None]
  - SWELLING [None]
